FAERS Safety Report 9661173 (Version 1)
Quarter: 2013Q4

REPORT INFORMATION
  Report Type: Spontaneous
  Country: US (occurrence: US)
  Receive Date: 20131031
  Receipt Date: 20131031
  Transmission Date: 20140711
  Serious: No
  Sender: FDA-Public Use
  Company Number: US-ENDO PHARMACEUTICALS INC.-ALLO20110029

PATIENT
  Age: 77 Year
  Sex: Male

DRUGS (1)
  1. ALLOPURINOL TABLETS 100MG [Suspect]
     Indication: BLOOD URIC ACID DECREASED
     Route: 048
     Dates: start: 20111026

REACTIONS (2)
  - Medication residue present [Unknown]
  - Drug ineffective [Unknown]
